FAERS Safety Report 23353513 (Version 5)
Quarter: 2024Q1

REPORT INFORMATION
  Report Type: Report from Study
  Country: JP (occurrence: JP)
  Receive Date: 20231231
  Receipt Date: 20240307
  Transmission Date: 20240409
  Serious: Yes (Hospitalization, Other)
  Sender: FDA-Public Use
  Company Number: JP-002147023-NVSJ2023JP018451

PATIENT
  Age: 48 Year
  Sex: Male

DRUGS (23)
  1. SCEMBLIX [Suspect]
     Active Substance: ASCIMINIB HYDROCHLORIDE
     Indication: Chronic myeloid leukaemia
     Dosage: 80 MG
     Route: 048
     Dates: start: 20220928, end: 20221009
  2. SCEMBLIX [Suspect]
     Active Substance: ASCIMINIB HYDROCHLORIDE
     Dosage: 80 MG
     Route: 048
     Dates: start: 20221015, end: 20221023
  3. SCEMBLIX [Suspect]
     Active Substance: ASCIMINIB HYDROCHLORIDE
     Dosage: 80 MG
     Route: 048
     Dates: start: 20221028, end: 20221127
  4. SCEMBLIX [Suspect]
     Active Substance: ASCIMINIB HYDROCHLORIDE
     Dosage: 80 MG
     Route: 048
     Dates: start: 20221202, end: 20221206
  5. SCEMBLIX [Suspect]
     Active Substance: ASCIMINIB HYDROCHLORIDE
     Dosage: 80 MG
     Route: 048
     Dates: start: 20221221, end: 20230114
  6. SCEMBLIX [Suspect]
     Active Substance: ASCIMINIB HYDROCHLORIDE
     Dosage: 80 MG
     Route: 048
     Dates: start: 20230117, end: 20230129
  7. SCEMBLIX [Suspect]
     Active Substance: ASCIMINIB HYDROCHLORIDE
     Dosage: 80 MG
     Route: 048
     Dates: start: 20230201, end: 20230306
  8. SCEMBLIX [Suspect]
     Active Substance: ASCIMINIB HYDROCHLORIDE
     Dosage: 40 MG
     Route: 048
     Dates: start: 20230610, end: 20230618
  9. SCEMBLIX [Suspect]
     Active Substance: ASCIMINIB HYDROCHLORIDE
     Dosage: 80 MG
     Route: 048
     Dates: start: 20230624
  10. CYCLOSPORINE [Suspect]
     Active Substance: CYCLOSPORINE
     Indication: Prophylaxis against graft versus host disease
     Dosage: UNK
     Route: 065
  11. METHOTREXATE [Suspect]
     Active Substance: METHOTREXATE
     Indication: Chronic myeloid leukaemia
     Dosage: UNK
     Route: 065
     Dates: start: 20221012, end: 20221012
  12. METHOTREXATE [Suspect]
     Active Substance: METHOTREXATE
     Indication: Prophylaxis against graft versus host disease
     Dosage: UNK
     Route: 065
     Dates: start: 20221129, end: 20221129
  13. PREDNISOLONE [Suspect]
     Active Substance: PREDNISOLONE
     Indication: Chronic myeloid leukaemia
     Dosage: UNK
     Route: 065
     Dates: start: 20221012, end: 20221014
  14. PREDNISOLONE [Suspect]
     Active Substance: PREDNISOLONE
     Dosage: UNK
     Route: 065
     Dates: start: 20221129, end: 20221201
  15. CYTARABINE [Suspect]
     Active Substance: CYTARABINE
     Indication: Chronic myeloid leukaemia
     Dosage: UNK
     Route: 065
     Dates: start: 20221013, end: 20221014
  16. CYTARABINE [Suspect]
     Active Substance: CYTARABINE
     Dosage: UNK
     Route: 065
     Dates: start: 20221130, end: 20221201
  17. VINCRISTINE [Suspect]
     Active Substance: VINCRISTINE
     Indication: Chronic myeloid leukaemia
     Dosage: UNK
     Route: 065
  18. VINCRISTINE [Suspect]
     Active Substance: VINCRISTINE
     Dosage: UNK
     Route: 065
     Dates: start: 20230116, end: 20230116
  19. DAUNORUBICIN [Suspect]
     Active Substance: DAUNORUBICIN
     Indication: Chronic myeloid leukaemia
     Dosage: UNK
     Route: 065
     Dates: start: 20230116, end: 20230116
  20. CYCLOPHOSPHAMIDE [Suspect]
     Active Substance: CYCLOPHOSPHAMIDE
     Indication: Chronic myeloid leukaemia
     Dosage: UNK
     Route: 065
  21. CYCLOPHOSPHAMIDE [Suspect]
     Active Substance: CYCLOPHOSPHAMIDE
     Indication: Bone marrow transplant
     Dosage: UNK
     Route: 065
     Dates: start: 20230116, end: 20230116
  22. SPRYCEL [Concomitant]
     Active Substance: DASATINIB
     Indication: Chronic myeloid leukaemia
     Dosage: UNK
     Route: 065
  23. IMATINIB [Concomitant]
     Active Substance: IMATINIB
     Indication: Chronic myeloid leukaemia
     Dosage: UNK
     Route: 065

REACTIONS (6)
  - Myelosuppression [Recovered/Resolved]
  - Myelosuppression [Recovered/Resolved]
  - Myelosuppression [Recovered/Resolved]
  - Eosinophilia [Recovering/Resolving]
  - Lymphocyte count decreased [Unknown]
  - Arthralgia [Recovering/Resolving]

NARRATIVE: CASE EVENT DATE: 20221024
